FAERS Safety Report 8385854-9 (Version None)
Quarter: 2012Q2

REPORT INFORMATION
  Report Type: 
  Country: None (occurrence: None)
  Receive Date: 20120525
  Receipt Date: 20120515
  Transmission Date: 20120825
  Serious: Yes (Disabling, Other)
  Sender: FDA-Public Use
  Company Number: CN-JNJFOC-20110206222

PATIENT
  Sex: Female
  Weight: 72 kg

DRUGS (3)
  1. RISPERDAL [Suspect]
     Route: 048
     Dates: start: 20060101
  2. RISPERDAL [Suspect]
     Route: 048
     Dates: start: 20020224, end: 20030224
  3. RISPERDAL [Suspect]
     Indication: SCHIZOPHRENIA
     Route: 048
     Dates: start: 20040601

REACTIONS (8)
  - AMENORRHOEA [None]
  - INCREASED APPETITE [None]
  - WEIGHT INCREASED [None]
  - SCHIZOPHRENIA [None]
  - MATERNAL EXPOSURE DURING PREGNANCY [None]
  - HEADACHE [None]
  - MENSTRUAL DISORDER [None]
  - DYSMENORRHOEA [None]
